FAERS Safety Report 6772767-9 (Version None)
Quarter: 2010Q2

REPORT INFORMATION
  Report Type: 
  Country: None (occurrence: None)
  Receive Date: 20100614
  Receipt Date: 20100602
  Transmission Date: 20101027
  Serious: Yes (Death, Hospitalization)
  Sender: FDA-Public Use
  Company Number: A-US2009-28580

PATIENT
  Age: 76 Year
  Sex: Male
  Weight: 89 kg

DRUGS (3)
  1. TRACLEER [Suspect]
     Indication: PULMONARY ARTERIAL HYPERTENSION
     Dosage: 125 MG, BID; 62.5 MG, BID, ORAL
     Route: 048
     Dates: start: 20090701, end: 20091001
  2. TRACLEER [Suspect]
     Indication: PULMONARY ARTERIAL HYPERTENSION
     Dosage: 125 MG, BID; 62.5 MG, BID, ORAL
     Route: 048
     Dates: start: 20091001, end: 20100125
  3. REVATIO [Concomitant]

REACTIONS (4)
  - HYPOTENSION [None]
  - PNEUMONIA [None]
  - PULMONARY HYPERTENSION [None]
  - RESPIRATORY FAILURE [None]
